FAERS Safety Report 23070062 (Version 2)
Quarter: 2023Q4

REPORT INFORMATION
  Report Type: Report from Study
  Country: CA (occurrence: CA)
  Receive Date: 20231016
  Receipt Date: 20231212
  Transmission Date: 20240110
  Serious: Yes (Hospitalization)
  Sender: FDA-Public Use
  Company Number: CA-BEH-2023163948

PATIENT
  Age: 79 Year
  Sex: Male
  Weight: 61.5 kg

DRUGS (2)
  1. HIZENTRA [Suspect]
     Active Substance: HUMAN IMMUNOGLOBULIN G
     Indication: Chronic inflammatory demyelinating polyradiculoneuropathy
     Dosage: 24 GRAM, QW, DIVIDED IN 2 DOSES
     Route: 065
     Dates: start: 20181224
  2. PROPRANOLOL HYDROCHLORIDE [Concomitant]
     Active Substance: PROPRANOLOL HYDROCHLORIDE

REACTIONS (3)
  - No adverse event [Unknown]
  - Therapy interrupted [Unknown]
  - Confusional state [Unknown]
